FAERS Safety Report 23800391 (Version 1)
Quarter: 2024Q2

REPORT INFORMATION
  Report Type: Spontaneous
  Country: US (occurrence: US)
  Receive Date: 20240430
  Receipt Date: 20240430
  Transmission Date: 20240716
  Serious: No
  Sender: FDA-Public Use
  Company Number: US-VERO BIOTECH-2024001072

PATIENT
  Sex: Male

DRUGS (1)
  1. GENOSYL [Suspect]
     Active Substance: NITRIC OXIDE

REACTIONS (4)
  - Device failure [None]
  - Device delivery system issue [None]
  - Overdose [None]
  - Ventricular tachycardia [None]
